FAERS Safety Report 4531399-3 (Version None)
Quarter: 2004Q4

REPORT INFORMATION
  Report Type: 
  Country: None (occurrence: None)
  Receive Date: 20041216
  Receipt Date: 20041129
  Transmission Date: 20050328
  Serious: Yes (Hospitalization, Other)
  Sender: FDA-Public Use
  Company Number: USA040772182

PATIENT
  Age: 83 Year
  Sex: Female
  Weight: 45 kg

DRUGS (5)
  1. FORTEO [Suspect]
     Indication: OSTEOPOROSIS
     Dosage: 20 UG DAY
     Dates: start: 20040213
  2. MULTIVITAMIN [Concomitant]
  3. CALCIUM [Concomitant]
  4. NORVASC [Concomitant]
  5. TOPROL-XL [Concomitant]

REACTIONS (11)
  - ASTHENIA [None]
  - COLD SWEAT [None]
  - CONSTIPATION [None]
  - DIZZINESS [None]
  - MEDICATION ERROR [None]
  - NAUSEA [None]
  - PANCREATIC DUCT OBSTRUCTION [None]
  - PHARMACEUTICAL PRODUCT COMPLAINT [None]
  - RETCHING [None]
  - ULCER [None]
  - WEIGHT DECREASED [None]
